FAERS Safety Report 8201639-8 (Version None)
Quarter: 2012Q1

REPORT INFORMATION
  Report Type: 
  Country: None (occurrence: None)
  Receive Date: 20120312
  Receipt Date: 20120305
  Transmission Date: 20120608
  Serious: Yes (Death, Hospitalization)
  Sender: FDA-Public Use
  Company Number: CA-ABBOTT-12P-028-0909554-00

PATIENT
  Sex: Female

DRUGS (1)
  1. HUMIRA [Suspect]
     Indication: CROHN'S DISEASE
     Dosage: 160 MG -FIRST LOADING DOSE
     Route: 058
     Dates: start: 20120217, end: 20120217

REACTIONS (3)
  - LUNG NEOPLASM MALIGNANT [None]
  - MALAISE [None]
  - HEPATIC NEOPLASM MALIGNANT [None]
